FAERS Safety Report 11414844 (Version 4)
Quarter: 2015Q4

REPORT INFORMATION
  Report Type: Spontaneous
  Country: JP (occurrence: JP)
  Receive Date: 20150825
  Receipt Date: 20151016
  Transmission Date: 20160304
  Serious: Yes (Death, Life-Threatening, Hospitalization, Other)
  Sender: FDA-Public Use
  Company Number: JP-009507513-1508JPN009703

PATIENT
  Age: 20 Year
  Sex: Female
  Weight: 28 kg

DRUGS (30)
  1. ELNEOPA NO. 2 [Concomitant]
     Active Substance: UNSPECIFIED INGREDIENT
     Indication: DECREASED APPETITE
     Dosage: 1 DF, QD
     Route: 051
     Dates: start: 20140908, end: 20140908
  2. PLATELETS [Concomitant]
     Active Substance: HUMAN PLATELET, ALLOGENIC
     Indication: DISSEMINATED INTRAVASCULAR COAGULATION
     Dosage: 20 (UNDER 1000 UNIT), AS OCCASION ARISES
     Route: 051
     Dates: start: 20140907, end: 20140915
  3. L CARTIN [Concomitant]
     Indication: DECREASED APPETITE
     Dosage: 1 G, QD
     Route: 042
     Dates: start: 20140913, end: 20141004
  4. PIPERACILLIN SODIUM [Concomitant]
     Active Substance: PIPERACILLIN SODIUM
     Indication: PSEUDOMONAS INFECTION
     Dosage: 4 G, QID
     Route: 051
     Dates: start: 20140903, end: 20140930
  5. ASPARA POTASSIUM [Concomitant]
     Active Substance: POTASSIUM ASPARTATE
     Indication: DECREASED APPETITE
     Dosage: 20 ML, QD
     Route: 051
     Dates: start: 20140913, end: 20141004
  6. DIPRIVAN [Concomitant]
     Active Substance: PROPOFOL
     Indication: SEDATION
     Dosage: 200 MG, QD
     Route: 051
     Dates: start: 20140912, end: 20141004
  7. TOBRACIN (TOBRAMYCIN) [Concomitant]
     Indication: PSEUDOMONAS INFECTION
     Dosage: 60 MG, BID
     Route: 051
     Dates: start: 20140903, end: 20141004
  8. VANCOMYCIN HYDROCHLORIDE. [Concomitant]
     Active Substance: VANCOMYCIN HYDROCHLORIDE
     Indication: DEVICE RELATED INFECTION
     Dosage: 250 MG, QD
     Route: 051
     Dates: start: 20140903, end: 20140909
  9. HUMULIN R [Concomitant]
     Active Substance: INSULIN HUMAN
     Indication: GLUCOSE TOLERANCE IMPAIRED
     Dosage: 20 (UNDER 1000 UNIT), QD
     Route: 051
     Dates: start: 20140904, end: 20140910
  10. SODIUM PHOSPHATE, DIBASIC [Concomitant]
     Active Substance: SODIUM PHOSPHATE, DIBASIC
     Indication: HYPERMETABOLISM
     Dosage: 20 MMOL, QD
     Route: 051
     Dates: start: 20140905, end: 20141003
  11. VITAJECT [Concomitant]
     Active Substance: CYANOCOBALAMIN\PYRIDOXAMINE HYDROCHLORIDE\THIAMINE HYDROCHLORIDE
     Indication: DECREASED APPETITE
     Dosage: 10 ML, QD
     Route: 051
     Dates: start: 20140913, end: 20141004
  12. FAMOTIDINE. [Concomitant]
     Active Substance: FAMOTIDINE
     Indication: MUCOUS MEMBRANE DISORDER
     Dosage: UNK
     Route: 051
     Dates: start: 20140903, end: 20140903
  13. ADONA [Concomitant]
     Active Substance: CARBAZOCHROME SODIUM SULFONATE
     Indication: MUCOSAL HAEMORRHAGE
     Dosage: 100 MG, QD
     Route: 051
     Dates: start: 20140910, end: 20140910
  14. TRANSAMIN [Concomitant]
     Active Substance: TRANEXAMIC ACID
     Indication: MUCOSAL HAEMORRHAGE
     Dosage: 1 G, QD
     Route: 051
     Dates: start: 20140910, end: 20140910
  15. BLOOD CELLS, RED [Concomitant]
     Active Substance: HUMAN BLOOD CELLS
     Indication: ANAEMIA
     Dosage: 2 (UNDER 1000 UNIT), AS OCCASION ARISES
     Route: 051
     Dates: start: 20140906, end: 20140930
  16. SACCHARIDE ISOMERATE [Concomitant]
     Indication: HYPERMETABOLISM
     Dosage: 20 ML, AS OCCASION ARISES
     Route: 051
     Dates: start: 20140904, end: 20140930
  17. KIDMIN [Concomitant]
     Indication: DECREASED APPETITE
     Dosage: 200 ML, QD
     Route: 051
     Dates: start: 20140913, end: 20141004
  18. VEEN F [Concomitant]
     Indication: DEHYDRATION
     Dosage: 500 ML, AS OCCASION ARISES
     Route: 051
     Dates: start: 20140918, end: 20140918
  19. ELNEOPA NO. 1 [Concomitant]
     Indication: DECREASED APPETITE
     Dosage: 1 DF, QD
     Route: 051
     Dates: start: 20140907, end: 20140907
  20. MINERIC 5 [Concomitant]
     Indication: DECREASED APPETITE
     Dosage: 2 ML, QD
     Route: 051
     Dates: start: 20140913, end: 20141004
  21. NOREPINEPHRINE [Concomitant]
     Active Substance: NOREPINEPHRINE\NOREPINEPHRINE BITARTRATE
     Indication: PSEUDOMONAS INFECTION
     Dosage: 5 MG, AS OCCASION ARISES
     Route: 051
     Dates: start: 20140918, end: 20140918
  22. NESP [Concomitant]
     Active Substance: DARBEPOETIN ALFA
     Indication: NEPHROGENIC ANAEMIA
     Dosage: 15 MICROGRAM, QW
     Route: 051
     Dates: start: 20140906, end: 20140927
  23. BLOOD, PLASMA [Concomitant]
     Indication: DISSEMINATED INTRAVASCULAR COAGULATION
     Dosage: 2 (UNDER 1000 UNIT), AS OCCASION ARISES
     Route: 051
     Dates: start: 20140909, end: 20141001
  24. TAKEPRON [Concomitant]
     Active Substance: LANSOPRAZOLE
     Indication: MUCOUS MEMBRANE DISORDER
     Dosage: 30 MG, BID
     Route: 051
     Dates: start: 20140910, end: 20141004
  25. HICALIQ RF [Concomitant]
     Active Substance: CALCIUM GLUCONATE\DEXTROSE\MAGNESIUM SULFATE\POTASSIUM ACETATE\POTASSIUM PHOSPHATE, DIBASIC\ZINC SULFATE
     Indication: DECREASED APPETITE
     Dosage: 500 ML, QD
     Route: 051
     Dates: start: 20140913, end: 20141004
  26. INTRALIPOS [Concomitant]
     Active Substance: SOYBEAN OIL
     Indication: DECREASED APPETITE
     Dosage: 50 ML, QW
     Route: 051
     Dates: start: 20140906, end: 20140924
  27. BROMHEXINE HYDROCHLORIDE [Concomitant]
     Active Substance: BROMHEXINE HYDROCHLORIDE
     Indication: SPUTUM RETENTION
     Dosage: 4 MG, QD
     Route: 051
     Dates: start: 20140914, end: 20141004
  28. CANCIDAS [Suspect]
     Active Substance: CASPOFUNGIN ACETATE
     Indication: SYSTEMIC CANDIDA
     Dosage: 50 MG, QD
     Route: 041
     Dates: start: 20140903, end: 20141003
  29. PRECEDEX [Concomitant]
     Active Substance: DEXMEDETOMIDINE HYDROCHLORIDE
     Indication: SEDATION
     Dosage: 200 MICROGRAM, UNK
     Route: 051
     Dates: start: 20140907, end: 20140907
  30. ALBUMINAR [Concomitant]
     Active Substance: ALBUMIN (HUMAN)
     Indication: DEHYDRATION
     Dosage: 250 ML, AS OCCASION ARISES
     Route: 042
     Dates: start: 20140914, end: 20141003

REACTIONS (13)
  - Mucosal haemorrhage [Recovered/Resolved]
  - Hypernatraemia [Recovered/Resolved]
  - Pseudomonas infection [Fatal]
  - Anaemia [Recovered/Resolved with Sequelae]
  - Device related infection [Recovering/Resolving]
  - Nephrogenic anaemia [Recovering/Resolving]
  - Sputum retention [Recovered/Resolved]
  - Disseminated intravascular coagulation [Recovered/Resolved with Sequelae]
  - Decreased appetite [Recovered/Resolved with Sequelae]
  - Mucous membrane disorder [Recovered/Resolved]
  - Hypermetabolism [Recovered/Resolved with Sequelae]
  - Dehydration [Recovered/Resolved]
  - Glucose tolerance impaired [Recovered/Resolved]

NARRATIVE: CASE EVENT DATE: 20140903
